FAERS Safety Report 20746060 (Version 1)
Quarter: 2022Q2

REPORT INFORMATION
  Report Type: Spontaneous
  Country: US (occurrence: US)
  Receive Date: 20220425
  Receipt Date: 20220425
  Transmission Date: 20220721
  Serious: No
  Sender: FDA-Public Use
  Company Number: US-MIRM-000315

PATIENT
  Sex: Male

DRUGS (6)
  1. LIVMARLI [Suspect]
     Active Substance: MARALIXIBAT CHLORIDE
     Indication: Cholestatic pruritus
     Route: 048
     Dates: start: 20220213
  2. 1259193 (GLOBALC3Sep19): Benadryl [Concomitant]
  3. 2026074 (GLOBALC3Sep19): Miralax [Concomitant]
  4. 2379732 (GLOBALC3Sep19): MVI [Concomitant]
  5. 1328777 (GLOBALC3Sep19): Ursodiol [Concomitant]
     Dosage: TO STOP TAKING BID 2/28/22
     Dates: end: 20220228
  6. 1328777 (GLOBALC3Sep19): Ursodiol [Concomitant]
     Dosage: TIME INTERVAL: AS NECESSARY; AFTER 2/28 PRN
     Dates: start: 20220301

REACTIONS (1)
  - Diarrhoea [Unknown]
